FAERS Safety Report 24001217 (Version 1)
Quarter: 2024Q2

REPORT INFORMATION
  Report Type: Spontaneous
  Country: US (occurrence: None)
  Receive Date: 20240621
  Receipt Date: 20240621
  Transmission Date: 20240716
  Serious: Yes (Hospitalization)
  Sender: FDA-Public Use
  Company Number: None

PATIENT
  Age: 70 Year
  Sex: Female
  Weight: 61.65 kg

DRUGS (1)
  1. DAPSONE [Suspect]
     Active Substance: DAPSONE
     Dates: start: 20240609, end: 20240618

REACTIONS (4)
  - Dyspnoea [None]
  - Hypoxia [None]
  - Methaemoglobinuria [None]
  - Blood lactic acid increased [None]

NARRATIVE: CASE EVENT DATE: 20240619
